FAERS Safety Report 4864168-5 (Version None)
Quarter: 2005Q4

REPORT INFORMATION
  Report Type: 
  Country: None (occurrence: None)
  Receive Date: 20051222
  Receipt Date: 20051212
  Transmission Date: 20060501
  Serious: Yes (Hospitalization)
  Sender: FDA-Public Use
  Company Number: DE-GLAXOSMITHKLINE-D0048224A

PATIENT
  Age: 21 Year
  Sex: Male

DRUGS (1)
  1. ZYBAN [Suspect]
     Dosage: 1TAB VARIABLE DOSE
     Route: 048
     Dates: start: 20050208, end: 20050216

REACTIONS (20)
  - ARTHRALGIA [None]
  - COUGH [None]
  - DEPRESSION [None]
  - DISTURBANCE IN ATTENTION [None]
  - DYSPNOEA [None]
  - DYSSTASIA [None]
  - ERYTHEMA [None]
  - FEELING COLD [None]
  - HEADACHE [None]
  - HYPERHIDROSIS [None]
  - HYPERSENSITIVITY [None]
  - HYPOAESTHESIA [None]
  - INSOMNIA [None]
  - JOINT SWELLING [None]
  - LOCAL SWELLING [None]
  - PAIN [None]
  - PRURITUS [None]
  - PYREXIA [None]
  - SWELLING FACE [None]
  - URTICARIA [None]
